FAERS Safety Report 19358760 (Version 1)
Quarter: 2021Q2

REPORT INFORMATION
  Report Type: Spontaneous
  Country: US (occurrence: US)
  Receive Date: 20210602
  Receipt Date: 20210602
  Transmission Date: 20210717
  Serious: Yes (Hospitalization)
  Sender: FDA-Public Use
  Company Number: None

PATIENT
  Sex: Female

DRUGS (5)
  1. WARFARIN TAB 3MG [Concomitant]
     Dates: start: 20201207
  2. FUROSEMIDE TAB 20MG [Concomitant]
     Dates: start: 20210314
  3. METOPROL TAR TAB 100MBG [Concomitant]
     Dates: start: 20210314
  4. DIGOXIN TAB  0.125MG [Concomitant]
     Dates: start: 20210314
  5. DOFETILIDE. [Suspect]
     Active Substance: DOFETILIDE
     Indication: ATRIAL FIBRILLATION
     Route: 048
     Dates: start: 20180309

REACTIONS (1)
  - Hospitalisation [None]
